FAERS Safety Report 8509490-6 (Version None)
Quarter: 2012Q3

REPORT INFORMATION
  Report Type: 
  Country: None (occurrence: None)
  Receive Date: 20120713
  Receipt Date: 20120628
  Transmission Date: 20120928
  Serious: Yes (Hospitalization)
  Sender: FDA-Public Use
  Company Number: JP-JNJFOC-20120705829

PATIENT
  Sex: Female
  Weight: 56.7 kg

DRUGS (19)
  1. GABAPENTIN [Suspect]
     Route: 048
     Dates: start: 20080620, end: 20080717
  2. GABAPENTIN [Suspect]
     Route: 048
     Dates: end: 20080424
  3. TEGRETOL [Suspect]
     Indication: EPILEPSY
     Route: 048
  4. DIAMOX [Concomitant]
     Route: 048
     Dates: end: 20080410
  5. TOPIRAMATE [Suspect]
     Route: 048
     Dates: start: 20080523, end: 20080605
  6. TOPIRAMATE [Suspect]
     Route: 048
     Dates: start: 20080411, end: 20080424
  7. TOPIRAMATE [Suspect]
     Indication: EPILEPSY
     Route: 048
     Dates: start: 20080912, end: 20081009
  8. TOPIRAMATE [Suspect]
     Route: 048
     Dates: start: 20080425, end: 20080508
  9. GABAPENTIN [Suspect]
     Route: 048
     Dates: start: 20080523, end: 20080605
  10. GABAPENTIN [Suspect]
     Route: 048
     Dates: start: 20080509, end: 20080522
  11. CLOBAZAM [Concomitant]
     Route: 048
  12. TOPIRAMATE [Suspect]
     Route: 048
     Dates: start: 20080509, end: 20080522
  13. TOPIRAMATE [Suspect]
     Route: 048
     Dates: start: 20080620, end: 20080717
  14. TOPIRAMATE [Suspect]
     Route: 048
     Dates: start: 20081107, end: 20090313
  15. GABAPENTIN [Suspect]
     Indication: EPILEPSY
     Route: 048
     Dates: start: 20080606, end: 20080619
  16. TOPIRAMATE [Suspect]
     Route: 048
     Dates: start: 20080718, end: 20080911
  17. TOPIRAMATE [Suspect]
     Route: 048
     Dates: start: 20080606, end: 20080619
  18. TOPIRAMATE [Suspect]
     Route: 048
     Dates: start: 20081010, end: 20081106
  19. GABAPENTIN [Suspect]
     Route: 048
     Dates: start: 20080425, end: 20080508

REACTIONS (1)
  - STATUS EPILEPTICUS [None]
